FAERS Safety Report 8809728 (Version 1)
Quarter: 2012Q4

REPORT INFORMATION
  Report Type: 
  Country: US (occurrence: US)
  Receive Date: 20120926
  Receipt Date: 20120926
  Transmission Date: 20130627
  Serious: Yes (Other)
  Sender: FDA-Public Use
  Company Number: US-ROCHE-1123285

PATIENT
  Sex: Male

DRUGS (1)
  1. AVASTIN [Suspect]
     Indication: RENAL CANCER
     Route: 065

REACTIONS (5)
  - Bone lesion [Unknown]
  - Cachexia [Unknown]
  - Fatigue [Unknown]
  - Dysphonia [Unknown]
  - Weight decreased [Unknown]
